FAERS Safety Report 18408939 (Version 1)
Quarter: 2020Q4

REPORT INFORMATION
  Report Type: Spontaneous
  Country: CN (occurrence: CN)
  Receive Date: 20201020
  Receipt Date: 20201020
  Transmission Date: 20210114
  Serious: Yes (Other)
  Sender: FDA-Public Use
  Company Number: CN-PFIZER INC-2020403434

PATIENT
  Age: 23 Year
  Sex: Male
  Weight: 70 kg

DRUGS (3)
  1. GU KANG [Suspect]
     Active Substance: HERBALS
     Indication: BACK PAIN
     Dosage: 3 DF, 3X/DAY
     Route: 048
     Dates: start: 20200729, end: 20200729
  2. CELECOXIB. [Suspect]
     Active Substance: CELECOXIB
     Indication: BACK PAIN
     Dosage: ONE CAPSULE AT A TIME, TWICE A DAY
     Route: 048
     Dates: start: 20200729, end: 20200729
  3. YAO BI TONG [Suspect]
     Active Substance: HERBALS
     Indication: BACK PAIN
     Dosage: 2 DF, 3X/DAY
     Route: 048
     Dates: start: 20200729, end: 20200729

REACTIONS (6)
  - Erythema [Recovering/Resolving]
  - Swelling [Recovering/Resolving]
  - Swelling face [Recovering/Resolving]
  - Pruritus [Recovering/Resolving]
  - Off label use [Unknown]
  - Product use in unapproved indication [Unknown]

NARRATIVE: CASE EVENT DATE: 20200729
